FAERS Safety Report 7543637-3 (Version None)
Quarter: 2011Q2

REPORT INFORMATION
  Report Type: 
  Country: None (occurrence: None)
  Receive Date: 20110613
  Receipt Date: 20030211
  Transmission Date: 20111010
  Serious: Yes (Life-Threatening, Hospitalization)
  Sender: FDA-Public Use
  Company Number: PHHO2002CA10447

PATIENT
  Sex: Male

DRUGS (11)
  1. CLOZAPINE [Suspect]
     Dosage: 50 MG, BID
     Route: 048
     Dates: start: 20030107, end: 20030107
  2. CLOZAPINE [Suspect]
     Dosage: 500 MG, QD
     Route: 048
     Dates: start: 20021228, end: 20021229
  3. SERTRALINE HYDROCHLORIDE [Concomitant]
  4. VALPROATE SODIUM [Concomitant]
  5. CLOZAPINE [Suspect]
     Dosage: 400 MG, QD
     Route: 048
     Dates: start: 20021227, end: 20021227
  6. CLOZAPINE [Suspect]
     Dosage: 100 MG, BID
     Route: 048
     Dates: start: 20030108, end: 20030108
  7. CLOZAPINE [Suspect]
     Dosage: 100 MG, QD
     Route: 048
     Dates: start: 20021224, end: 20021224
  8. CLOZAPINE [Suspect]
     Dosage: 200 MG, QD
     Route: 048
     Dates: start: 20021225, end: 20021225
  9. CLOZAPINE [Suspect]
     Dosage: 300 MG, QD
     Route: 048
     Dates: start: 20021226, end: 20021226
  10. CLOZAPINE [Suspect]
     Dosage: 400 MG/DAY
     Route: 048
     Dates: start: 20030109, end: 20030109
  11. CLOZAPINE [Suspect]
     Route: 048
     Dates: start: 20001025, end: 20021220

REACTIONS (4)
  - GASTRIC HAEMORRHAGE [None]
  - SEPSIS [None]
  - RESPIRATORY ARREST [None]
  - INTESTINAL ISCHAEMIA [None]
